FAERS Safety Report 19417381 (Version 4)
Quarter: 2021Q3

REPORT INFORMATION
  Report Type: Report from Study
  Country: CN (occurrence: CN)
  Receive Date: 20210614
  Receipt Date: 20210721
  Transmission Date: 20211014
  Serious: Yes (Hospitalization, Other)
  Sender: FDA-Public Use
  Company Number: CN-BRISTOL-MYERS SQUIBB COMPANY-BMS-2021-056153

PATIENT
  Age: 44 Year
  Sex: Female
  Weight: 76 kg

DRUGS (9)
  1. VITAMIN C [Concomitant]
     Active Substance: ASCORBIC ACID
     Indication: METABOLIC DISORDER
     Dosage: 0.1 GRAM, TID
     Route: 048
     Dates: start: 20210604
  2. NIVOLUMAB [Suspect]
     Active Substance: NIVOLUMAB
     Indication: GASTRIC CANCER
     Dosage: 360 MILLIGRAM
     Route: 042
     Dates: start: 20201201, end: 20210616
  3. CAPECITABINE. [Suspect]
     Active Substance: CAPECITABINE
     Indication: GASTRIC CANCER
     Dosage: 1600 MILLIGRAM
     Route: 065
     Dates: start: 20201201, end: 20210616
  4. RECOMBINANT HUMAN GRANULOCYTE COLONY STIMULATING FACTOR [Concomitant]
     Active Substance: GRANULOCYTE COLONY-STIMULATING FACTOR NOS
     Indication: WHITE BLOOD CELL DISORDER
     Dosage: 200 MICROGRAM, QD
     Route: 058
     Dates: start: 20210602, end: 20210603
  5. MAGNESIUM ISOGLYCYRRHIZINATE [Concomitant]
     Active Substance: MAGNESIUM ISOGLYCYRRHIZINATE
     Indication: PROPHYLAXIS
     Dosage: 100 MILLIGRAM, QD
     Route: 042
     Dates: start: 20210602, end: 20210617
  6. COENZYME Q10 [Concomitant]
     Active Substance: DIETARY SUPPLEMENT\UBIDECARENONE
     Indication: NUTRITIONAL SUPPLEMENTATION
     Dosage: 10 MILLIGRAM, TID
     Route: 048
     Dates: start: 20210603
  7. OXALIPLATIN. [Suspect]
     Active Substance: OXALIPLATIN
     Indication: GASTRIC CANCER
     Dosage: 215.8 MILLIGRAM
     Route: 065
     Dates: start: 20201201, end: 20210616
  8. RECOMBINANT HUMAN GRANULOCYTE COLONY STIMULATING FACTOR [Concomitant]
     Active Substance: GRANULOCYTE COLONY-STIMULATING FACTOR NOS
     Dosage: 200 MICROGRAM
     Route: 058
     Dates: start: 20210607, end: 20210608
  9. GLUTATHIONE [Concomitant]
     Active Substance: GLUTATHIONE
     Indication: PROPHYLAXIS
     Dosage: 1.8 GRAM, QD
     Route: 042
     Dates: start: 20210602, end: 20210617

REACTIONS (1)
  - Hypothyroidism [Recovering/Resolving]

NARRATIVE: CASE EVENT DATE: 20210607
